FAERS Safety Report 15264339 (Version 1)
Quarter: 2018Q3

REPORT INFORMATION
  Report Type: Report from Study
  Country: DE (occurrence: DE)
  Receive Date: 20180810
  Receipt Date: 20180810
  Transmission Date: 20181010
  Serious: Yes (Death, Hospitalization, Other)
  Sender: FDA-Public Use
  Company Number: DE-TEVA-2018-DE-937849

PATIENT
  Sex: Female
  Weight: 81 kg

DRUGS (30)
  1. DOCETAXEL. [Suspect]
     Active Substance: DOCETAXEL
     Route: 042
     Dates: start: 20140310, end: 20140310
  2. DEXAMETHASON [Concomitant]
     Active Substance: DEXAMETHASONE
     Route: 042
     Dates: start: 20140331
  3. DEXAMETHASON [Concomitant]
     Active Substance: DEXAMETHASONE
     Dosage: 4 MILLIGRAM DAILY;
     Route: 048
     Dates: start: 20140411, end: 20140413
  4. DOCETAXEL. [Suspect]
     Active Substance: DOCETAXEL
     Route: 042
     Dates: start: 20140603, end: 20140624
  5. HERCEPTIN [Suspect]
     Active Substance: TRASTUZUMAB
     Route: 042
     Dates: start: 20140513, end: 20140624
  6. HERCEPTIN [Suspect]
     Active Substance: TRASTUZUMAB
     Route: 042
     Dates: start: 20130422, end: 20130422
  7. TAVEGIL [Concomitant]
     Active Substance: CLEMASTINE FUMARATE
     Dosage: IN EACH CYCLE
     Route: 042
     Dates: start: 20140331
  8. CIPROBAY [Concomitant]
     Active Substance: CIPROFLOXACIN
     Indication: NEUTROPENIA
     Dosage: 1000 MILLIGRAM DAILY;
     Route: 048
     Dates: start: 20140523, end: 20140527
  9. HERCEPTIN [Suspect]
     Active Substance: TRASTUZUMAB
     Route: 042
     Dates: start: 20140331, end: 20140331
  10. DEXAMETHASON [Concomitant]
     Active Substance: DEXAMETHASONE
     Dosage: 2 MILLIGRAM DAILY;
     Route: 048
     Dates: start: 20140414, end: 20140416
  11. DOCETAXEL. [Suspect]
     Active Substance: DOCETAXEL
     Route: 042
     Dates: start: 20140826, end: 20140916
  12. DOCETAXEL. [Suspect]
     Active Substance: DOCETAXEL
     Route: 042
     Dates: start: 20140513, end: 20140513
  13. HERCEPTIN [Suspect]
     Active Substance: TRASTUZUMAB
     Indication: HER-2 POSITIVE BREAST CANCER
     Route: 042
     Dates: end: 20140916
  14. HERCEPTIN [Suspect]
     Active Substance: TRASTUZUMAB
     Dosage: LOADING DOSE
     Route: 042
     Dates: start: 20140310, end: 20140310
  15. HERCEPTIN [Suspect]
     Active Substance: TRASTUZUMAB
     Route: 042
     Dates: start: 20140805, end: 20141013
  16. PERTUZUMAB. [Suspect]
     Active Substance: PERTUZUMAB
     Dosage: MAINTENANCE DOSE
     Route: 042
     Dates: start: 20140331, end: 20141013
  17. CIPROBAY [Concomitant]
     Active Substance: CIPROFLOXACIN
     Dosage: 1000 MILLIGRAM DAILY;
     Route: 048
     Dates: start: 20140319, end: 20140324
  18. DEXAMETHASON [Concomitant]
     Active Substance: DEXAMETHASONE
     Dosage: 4 MILLIGRAM DAILY;
     Route: 048
     Dates: start: 20140303, end: 20140310
  19. HERCEPTIN [Suspect]
     Active Substance: TRASTUZUMAB
     Route: 042
     Dates: start: 20140715, end: 20140715
  20. CIPROHEXAL [Concomitant]
     Indication: LEUKOPENIA
     Dosage: 1000 MILLIGRAM DAILY;
     Route: 048
     Dates: start: 20140610, end: 20140617
  21. DEXAMETHASON [Concomitant]
     Active Substance: DEXAMETHASONE
     Indication: HYPERSENSITIVITY
     Dosage: 8 MILLIGRAM DAILY;
     Route: 048
     Dates: start: 20140303, end: 20140407
  22. L?THYROXIN [Concomitant]
     Active Substance: LEVOTHYROXINE SODIUM
     Indication: HYPOTHYROIDISM
     Dosage: 75 MICROGRAM DAILY;
     Route: 048
  23. PERTUZUMAB. [Suspect]
     Active Substance: PERTUZUMAB
     Indication: HER-2 POSITIVE BREAST CANCER
     Dosage: LOADING DOSE
     Route: 042
     Dates: start: 20140307, end: 20140307
  24. RANITIDIN [Concomitant]
     Active Substance: RANITIDINE HYDROCHLORIDE
     Indication: PREMEDICATION
     Route: 042
     Dates: start: 20140331
  25. DEXAMETHASON [Concomitant]
     Active Substance: DEXAMETHASONE
     Dosage: 6 MILLIGRAM DAILY;
     Route: 048
     Dates: start: 20140408, end: 20140410
  26. CIPROHEXAL [Concomitant]
     Indication: NEUTROPENIA
     Dosage: 1000 MILLIGRAM DAILY;
     Route: 048
     Dates: start: 20140812, end: 20140816
  27. CIPROBAY [Concomitant]
     Active Substance: CIPROFLOXACIN
     Dosage: 1000 MILLIGRAM DAILY;
     Route: 048
     Dates: start: 20140903, end: 20140907
  28. DOCETAXEL. [Suspect]
     Active Substance: DOCETAXEL
     Route: 042
     Dates: start: 20140331, end: 20140331
  29. DOCETAXEL. [Suspect]
     Active Substance: DOCETAXEL
     Route: 042
     Dates: start: 20140422, end: 20140422
  30. CIPROBAY [Concomitant]
     Active Substance: CIPROFLOXACIN
     Indication: LEUKOPENIA
     Dosage: 1000 MILLIGRAM DAILY;
     Route: 048
     Dates: start: 20140319, end: 20140324

REACTIONS (19)
  - Cerebral disorder [Fatal]
  - Disorientation [Fatal]
  - Vomiting [Fatal]
  - Visual impairment [Fatal]
  - Compression fracture [Fatal]
  - Visual impairment [Fatal]
  - Weight decreased [Fatal]
  - Fatigue [Fatal]
  - Metastases to central nervous system [Fatal]
  - Leukopenia [Fatal]
  - Fall [Fatal]
  - Neutropenia [Fatal]
  - Diarrhoea [Fatal]
  - Leukopenia [Fatal]
  - Paraesthesia [Fatal]
  - Gait disturbance [Fatal]
  - Balance disorder [Fatal]
  - Dysarthria [Fatal]
  - Dysstasia [Fatal]

NARRATIVE: CASE EVENT DATE: 20140312
